FAERS Safety Report 21555993 (Version 5)
Quarter: 2025Q4

REPORT INFORMATION
  Report Type: Report from Study
  Country: US (occurrence: US)
  Receive Date: 20221104
  Receipt Date: 20251010
  Transmission Date: 20260118
  Serious: Yes (Life-Threatening, Hospitalization, Other)
  Sender: NOVARTIS
  Company Number: US-002147023-NVSC2022US140336

PATIENT
  Age: 62 Year
  Sex: Female
  Weight: 89.5 kg

DRUGS (9)
  1. COSENTYX [Suspect]
     Active Substance: SECUKINUMAB
     Indication: Psoriasis
     Dosage: 300 MG, QMO
     Route: 058
     Dates: start: 20161024, end: 20211101
  2. COSENTYX [Suspect]
     Active Substance: SECUKINUMAB
     Dosage: 300 MG, QMO
     Route: 058
     Dates: start: 20211201
  3. LEVOTHYROXINE [Concomitant]
     Active Substance: LEVOTHYROXINE
     Indication: Thyroid disorder
     Dosage: 40 MG
     Route: 065
  4. JARDIANCE [Concomitant]
     Active Substance: EMPAGLIFLOZIN
     Indication: Diabetes mellitus
     Dosage: UNK
     Route: 065
  5. LOSARTAN [Concomitant]
     Active Substance: LOSARTAN
     Indication: Hypertension
     Dosage: 100 MG
     Route: 065
  6. OMEPRAZOLE [Concomitant]
     Active Substance: OMEPRAZOLE
     Indication: Gastrooesophageal reflux disease
     Dosage: UNK
     Route: 065
  7. FLONASE [Concomitant]
     Active Substance: FLUTICASONE PROPIONATE
     Indication: Product used for unknown indication
     Dosage: UNK
     Route: 065
  8. LINEZOLID [Concomitant]
     Active Substance: LINEZOLID
     Indication: Product used for unknown indication
     Dosage: UNK
     Route: 065
  9. CALCIPOTRIENE AND BETAMETHASONE DIPROPIONATE [Concomitant]
     Active Substance: BETAMETHASONE DIPROPIONATE\CALCIPOTRIENE
     Indication: Psoriasis
     Dosage: UNK
     Route: 065

REACTIONS (31)
  - Drug reaction with eosinophilia and systemic symptoms [Recovered/Resolved]
  - Hypotension [Unknown]
  - Acute kidney injury [Recovered/Resolved]
  - Acute hepatic failure [Recovered/Resolved]
  - Coagulopathy [Unknown]
  - Ischaemic hepatitis [Unknown]
  - Ischaemic stroke [Recovered/Resolved]
  - Multiple organ dysfunction syndrome [Recovered/Resolved with Sequelae]
  - Abdominal pain [Unknown]
  - Fatigue [Unknown]
  - Nausea [Unknown]
  - Pyrexia [Unknown]
  - Tachycardia [Unknown]
  - Decreased appetite [Unknown]
  - Mental status changes [Unknown]
  - Diarrhoea [Unknown]
  - Wheezing [Unknown]
  - Dyspnoea [Unknown]
  - Lactic acidosis [Recovered/Resolved with Sequelae]
  - Diverticulitis [Unknown]
  - Thrombocytopenia [Unknown]
  - Pyelonephritis [Unknown]
  - Urinary tract infection [Unknown]
  - Diastolic dysfunction [Unknown]
  - Gastrooesophageal reflux disease [Unknown]
  - Aphthous ulcer [Recovered/Resolved with Sequelae]
  - Pain [Not Recovered/Not Resolved]
  - Erythema [Recovered/Resolved with Sequelae]
  - Red blood cell anisocytes present [Unknown]
  - Left ventricular hypertrophy [Unknown]
  - Bronchitis [Unknown]

NARRATIVE: CASE EVENT DATE: 20170101
